FAERS Safety Report 15130488 (Version 1)
Quarter: 2018Q3

REPORT INFORMATION
  Report Type: Spontaneous
  Country: JP (occurrence: JP)
  Receive Date: 20180711
  Receipt Date: 20180711
  Transmission Date: 20181010
  Serious: Yes (Other)
  Sender: FDA-Public Use
  Company Number: JP-SAKK-BA201803266001

PATIENT
  Age: 55 Year
  Sex: Female
  Weight: 32.6 kg

DRUGS (43)
  1. CLEXANE 2000IU [Suspect]
     Active Substance: ENOXAPARIN SODIUM
     Indication: THROMBOSIS PROPHYLAXIS
     Dosage: 2000 IU, QD
     Route: 058
     Dates: start: 20180314, end: 20180314
  2. ALINAMIN F [FURSULTIAMINE] [Concomitant]
     Dosage: 1 DF, BID
     Route: 048
     Dates: start: 20180322, end: 20180322
  3. VITAMEDIN [BENFOTIAMINE;CYANOCOBALAMIN;PYRIDOXINE HYDROCHLORIDE] [Concomitant]
     Indication: DELIRIUM
     Dosage: 2 DF, TID
     Route: 048
     Dates: start: 20180315, end: 20180321
  4. CALONAL [Concomitant]
     Active Substance: ACETAMINOPHEN
     Dosage: 1 DF, BID
     Route: 048
     Dates: start: 20180322, end: 20180322
  5. FOLIAMIN [Concomitant]
     Active Substance: FOLIC ACID
     Dosage: 1 DF, TID
     Route: 048
     Dates: start: 20180315, end: 20180321
  6. BROTIZOLAM [Concomitant]
     Active Substance: BROTIZOLAM
     Indication: DELIRIUM
     Dosage: UNK
     Route: 048
     Dates: end: 20180308
  7. CALONAL [Concomitant]
     Active Substance: ACETAMINOPHEN
     Dosage: 1 DF, TID
     Route: 048
     Dates: start: 20180315, end: 20180321
  8. FOLIAMIN [Concomitant]
     Active Substance: FOLIC ACID
     Dosage: 1 DF, QD
     Route: 048
     Dates: start: 20180313, end: 20180314
  9. FOLIAMIN [Concomitant]
     Active Substance: FOLIC ACID
     Dosage: 1 DF, BID
     Route: 048
     Dates: start: 20180322, end: 20180322
  10. NICOTINAMIDE [Concomitant]
     Active Substance: NIACINAMIDE
     Indication: DELIRIUM
     Dosage: POWDER
     Route: 048
     Dates: start: 20180310
  11. NICOTINAMIDE [Concomitant]
     Active Substance: NIACINAMIDE
     Dosage: 50 MG, QD
     Route: 048
     Dates: start: 20180313, end: 20180314
  12. CEFAZOLIN NA [Concomitant]
     Active Substance: CEFAZOLIN SODIUM
     Indication: INFECTION PROPHYLAXIS
     Dosage: UNK UNK, 1X
     Route: 042
     Dates: start: 20180313, end: 20180313
  13. PROPOFOL. [Concomitant]
     Active Substance: PROPOFOL
     Indication: JOINT DISLOCATION
     Dosage: UNK
     Route: 065
     Dates: start: 20180322
  14. ISOTONIC SODIUM CHLORIDE SOLUTION [Concomitant]
     Active Substance: SODIUM CHLORIDE
     Indication: PRODUCT USED FOR UNKNOWN INDICATION
     Route: 065
  15. VITAMEDIN [BENFOTIAMINE;CYANOCOBALAMIN;PYRIDOXINE HYDROCHLORIDE] [Concomitant]
     Dosage: 2 DF, TID
     Route: 048
     Dates: start: 20180323, end: 20180404
  16. FOLIAMIN [Concomitant]
     Active Substance: FOLIC ACID
     Indication: DELIRIUM
     Dosage: UNK
     Route: 048
     Dates: start: 20180308
  17. CEFAZOLIN NA [Concomitant]
     Active Substance: CEFAZOLIN SODIUM
     Dosage: UNK, BID
     Route: 042
     Dates: start: 20180314, end: 20180405
  18. ROZEREM [Concomitant]
     Active Substance: RAMELTEON
     Indication: PRODUCT USED FOR UNKNOWN INDICATION
     Dosage: UNK
     Route: 065
     Dates: start: 20180404
  19. SOSEGON [PENTAZOCINE HYDROCHLORIDE] [Concomitant]
     Indication: PRODUCT USED FOR UNKNOWN INDICATION
     Dosage: UNK UNK, 1X
     Route: 065
     Dates: start: 20180313, end: 20180313
  20. ALINAMIN F [FURSULTIAMINE] [Concomitant]
     Indication: DELIRIUM
     Dosage: 1 DF, TID
     Route: 048
     Dates: start: 20180315, end: 20180321
  21. ALINAMIN F [FURSULTIAMINE] [Concomitant]
     Dosage: 1 DF, TID
     Route: 048
     Dates: start: 20180323, end: 20180404
  22. VITAMEDIN [BENFOTIAMINE;CYANOCOBALAMIN;PYRIDOXINE HYDROCHLORIDE] [Concomitant]
     Dosage: 2 DF, BID
     Route: 048
     Dates: start: 20180322, end: 20180322
  23. FOLIAMIN [Concomitant]
     Active Substance: FOLIC ACID
     Dosage: 1 DF, TID
     Route: 048
     Dates: start: 20180323, end: 20180404
  24. FOLIAMIN [Concomitant]
     Active Substance: FOLIC ACID
     Dosage: 1 DF, BID
     Route: 048
     Dates: start: 20180405, end: 20180405
  25. VITAMEDIN [BENFOTIAMINE;CYANOCOBALAMIN;PYRIDOXINE HYDROCHLORIDE] [Concomitant]
     Dosage: 2 DF, BID
     Route: 048
     Dates: start: 20180405, end: 20180405
  26. CALONAL [Concomitant]
     Active Substance: ACETAMINOPHEN
     Indication: INFECTION PROPHYLAXIS
     Dosage: UNK
     Route: 048
     Dates: start: 20180308
  27. CALONAL [Concomitant]
     Active Substance: ACETAMINOPHEN
     Dosage: 1 DF, BID
     Route: 048
     Dates: start: 20180314, end: 20180314
  28. SERENACE [Concomitant]
     Active Substance: HALOPERIDOL
     Indication: PRODUCT USED FOR UNKNOWN INDICATION
     Dosage: 0.5 UNK QD
     Route: 065
     Dates: start: 20180317, end: 20180318
  29. SOLDEM 3A [Concomitant]
     Active Substance: CARBOHYDRATES\POTASSIUM CHLORIDE\SODIUM CHLORIDE\SODIUM LACTATE
     Indication: PRODUCT USED FOR UNKNOWN INDICATION
     Route: 065
  30. NICOTINAMIDE [Concomitant]
     Active Substance: NIACINAMIDE
     Dosage: 50 MG, BID
     Route: 048
     Dates: start: 20180322, end: 20180322
  31. NICOTINAMIDE [Concomitant]
     Active Substance: NIACINAMIDE
     Dosage: 50 MG, QD
     Route: 048
     Dates: start: 20180411, end: 20180411
  32. METABOLIN G [Concomitant]
     Indication: PRODUCT USED FOR UNKNOWN INDICATION
     Route: 065
  33. CLEXANE 2000IU [Suspect]
     Active Substance: ENOXAPARIN SODIUM
     Dosage: 2000 IU, BID
     Route: 058
     Dates: start: 20180315, end: 20180320
  34. CLEXANE 2000IU [Suspect]
     Active Substance: ENOXAPARIN SODIUM
     Dosage: 2000 IU, QD
     Route: 058
     Dates: start: 20180321, end: 20180322
  35. ALINAMIN F [FURSULTIAMINE] [Concomitant]
     Dosage: 1 DF, BID
     Route: 048
     Dates: start: 20180405, end: 20180405
  36. CALONAL [Concomitant]
     Active Substance: ACETAMINOPHEN
     Dosage: 1 DF, TID
     Route: 048
     Dates: start: 20180323, end: 20180410
  37. CLEXANE 2000IU [Suspect]
     Active Substance: ENOXAPARIN SODIUM
     Dosage: 2000 IU, BID
     Route: 058
     Dates: start: 20180323, end: 20180324
  38. NICOTINAMIDE [Concomitant]
     Active Substance: NIACINAMIDE
     Dosage: 50 MG, TID
     Route: 048
     Dates: start: 20180315, end: 20180321
  39. NICOTINAMIDE [Concomitant]
     Active Substance: NIACINAMIDE
     Dosage: 50 MG, TID
     Route: 048
     Dates: start: 20180323, end: 20180410
  40. RISPERDAL [Concomitant]
     Active Substance: RISPERIDONE
     Indication: DELIRIUM
     Dosage: 1 DF, QD
     Route: 048
     Dates: start: 20180315, end: 20180410
  41. MINOCYCLINE HYDROCHLORIDE. [Concomitant]
     Active Substance: MINOCYCLINE HYDROCHLORIDE
     Indication: INFECTION PROPHYLAXIS
     Dosage: UNK UNK, BID
     Route: 042
     Dates: start: 20180314, end: 20180405
  42. YOKUKANSAN [Concomitant]
     Active Substance: HERBALS
     Indication: DELIRIUM
     Dosage: UNK
     Route: 048
     Dates: end: 20180308
  43. VITAMEDIN INTRAVENOUS [Concomitant]
     Active Substance: CYANOCOBALAMIN\PYRIDOXINE HYDROCHLORIDE\THIAMINE
     Indication: PRODUCT USED FOR UNKNOWN INDICATION
     Route: 065

REACTIONS (2)
  - Thrombocytosis [Recovering/Resolving]
  - Hypokalaemia [Recovered/Resolved]

NARRATIVE: CASE EVENT DATE: 20180319
